FAERS Safety Report 25012649 (Version 1)
Quarter: 2025Q1

REPORT INFORMATION
  Report Type: Spontaneous
  Country: DE (occurrence: DE)
  Receive Date: 20250226
  Receipt Date: 20250226
  Transmission Date: 20250409
  Serious: Yes (Hospitalization)
  Sender: TEVA
  Company Number: None

PATIENT
  Age: 71 Year
  Sex: Female

DRUGS (19)
  1. ATORVASTATIN [Suspect]
     Active Substance: ATORVASTATIN
     Indication: Product used for unknown indication
     Dosage: DAILY DOSE: 60 MG MILLGRAM(S) EVERY DAY,ATORVASTATIN CALCIUM
     Route: 048
  2. FUROSEMIDE [Concomitant]
     Active Substance: FUROSEMIDE
     Indication: Product used for unknown indication
     Dosage: DAILY DOSE: 60 MG MILLGRAM(S) EVERY DAY
     Route: 048
  3. ZOPICLONE [Concomitant]
     Active Substance: ZOPICLONE
     Indication: Product used for unknown indication
     Dosage: DAILY DOSE: 60 MG MILLGRAM(S) EVERY DAY
     Route: 048
  4. POTASSIUM CHLORIDE [Concomitant]
     Active Substance: POTASSIUM CHLORIDE
     Indication: Product used for unknown indication
     Dosage: DAILY DOSE: 60 MG MILLGRAM(S) EVERY DAY
     Route: 048
  5. REBOXETINE MESYLATE [Suspect]
     Active Substance: REBOXETINE MESYLATE
     Indication: Product used for unknown indication
     Dosage: DAILY DOSE: 60 MG MILLGRAM(S) EVERY DAY
     Route: 048
     Dates: start: 20040619, end: 20040621
  6. REBOXETINE MESYLATE [Suspect]
     Active Substance: REBOXETINE MESYLATE
     Indication: Product used for unknown indication
     Dosage: DAILY DOSE: 60 MG MILLGRAM(S) EVERY DAY
     Route: 048
     Dates: start: 20040302, end: 20040510
  7. REBOXETINE MESYLATE [Suspect]
     Active Substance: REBOXETINE MESYLATE
     Indication: Product used for unknown indication
     Dosage: DAILY DOSE: 60 MG MILLGRAM(S) EVERY DAY
     Route: 048
     Dates: start: 20040622, end: 20040624
  8. REBOXETINE MESYLATE [Suspect]
     Active Substance: REBOXETINE MESYLATE
     Indication: Product used for unknown indication
     Dosage: DAILY DOSE: 60 MG MILLGRAM(S) EVERY DAY
     Route: 048
     Dates: start: 20040514, end: 20040618
  9. REBOXETINE MESYLATE [Suspect]
     Active Substance: REBOXETINE MESYLATE
     Indication: Product used for unknown indication
     Route: 048
     Dates: end: 20040301
  10. DIGITOXIN [Concomitant]
     Active Substance: DIGITOXIN
     Indication: Product used for unknown indication
     Dosage: DAILY DOSE: 60 MG MILLGRAM(S) EVERY DAY
     Route: 048
  11. MELPERONE [Suspect]
     Active Substance: MELPERONE
     Indication: Product used for unknown indication
     Dosage: DAILY DOSE: 60 MG MILLGRAM(S) EVERY DAY, MELPERONE HYDROCHLORIDE
     Route: 048
     Dates: start: 20040302
  12. BISOPROLOL FUMARATE [Concomitant]
     Active Substance: BISOPROLOL FUMARATE
     Indication: Product used for unknown indication
     Dosage: DAILY DOSE: 60 MG MILLGRAM(S) EVERY DAY
     Route: 048
  13. HYDROCHLOROTHIAZIDE\IRBESARTAN [Suspect]
     Active Substance: HYDROCHLOROTHIAZIDE\IRBESARTAN
     Indication: Product used for unknown indication
     Dosage: DAILY DOSE: 60 MG MILLGRAM(S) EVERY DAY
     Route: 048
  14. INSULIN HUMAN [Concomitant]
     Active Substance: INSULIN HUMAN
     Indication: Product used for unknown indication
     Route: 058
  15. CALCIUM CARBONATE\CHOLECALCIFEROL [Concomitant]
     Active Substance: CALCIUM CARBONATE\CHOLECALCIFEROL
     Indication: Product used for unknown indication
     Dosage: DAILY DOSE: 60 MG MILLGRAM(S) EVERY DAY
     Route: 048
  16. MIRTAZAPINE [Suspect]
     Active Substance: MIRTAZAPINE
     Indication: Product used for unknown indication
     Route: 048
     Dates: start: 20040302, end: 20040510
  17. MIRTAZAPINE [Suspect]
     Active Substance: MIRTAZAPINE
     Indication: Product used for unknown indication
     Route: 048
     Dates: end: 20040301
  18. MIRTAZAPINE [Suspect]
     Active Substance: MIRTAZAPINE
     Indication: Product used for unknown indication
     Dosage: DAILY DOSE: 60 MG MILLGRAM(S) EVERY DAY
     Route: 048
     Dates: start: 20040619, end: 20040704
  19. MIRTAZAPINE [Suspect]
     Active Substance: MIRTAZAPINE
     Indication: Product used for unknown indication
     Route: 048
     Dates: start: 20040705

REACTIONS (1)
  - Generalised tonic-clonic seizure [Recovering/Resolving]

NARRATIVE: CASE EVENT DATE: 20040510
